FAERS Safety Report 8556765 (Version 2)
Quarter: 2012Q4

REPORT INFORMATION
  Report Type: 
  Country: US (occurrence: US)
  Receive Date: 20120511
  Receipt Date: 20121116
  Transmission Date: 20130627
  Serious: Yes (Hospitalization)
  Sender: FDA-Public Use
  Company Number: US-BIOGENIDEC-2012BI015784

PATIENT
  Age: 71 Year
  Sex: Male

DRUGS (1)
  1. TYSABRI [Suspect]
     Indication: MULTIPLE SCLEROSIS
     Route: 042
     Dates: start: 20111214

REACTIONS (2)
  - Gastrooesophageal sphincter insufficiency [Not Recovered/Not Resolved]
  - Drug specific antibody present [Unknown]
